FAERS Safety Report 5575181-7 (Version None)
Quarter: 2007Q4

REPORT INFORMATION
  Report Type: 
  Country: None (occurrence: None)
  Receive Date: 20071227
  Receipt Date: 20071217
  Transmission Date: 20080405
  Serious: Yes (Other)
  Sender: FDA-Public Use
  Company Number: DE-PFIZER INC-2007095078

PATIENT
  Age: 64 Year
  Sex: Male

DRUGS (10)
  1. ZOLOFT [Interacting]
     Indication: DEPRESSION
     Dosage: DAILY DOSE:100MG
     Route: 048
  2. SEROQUEL [Interacting]
     Dosage: DAILY DOSE:100MG
     Route: 048
     Dates: start: 20070525, end: 20070612
  3. LACTULOSE [Interacting]
     Indication: CONSTIPATION
     Dosage: DAILY DOSE:20ML-FREQ:DAILY
     Route: 048
     Dates: start: 20070529, end: 20070619
  4. STALEVO 100 [Interacting]
     Indication: PARKINSON'S DISEASE
     Dosage: DAILY DOSE:325MG
     Route: 048
  5. SINEMET [Suspect]
     Indication: PARKINSON'S DISEASE
     Dosage: DAILY DOSE:200MG
     Route: 048
  6. MIRTAZAPINE [Concomitant]
     Dosage: DAILY DOSE:15MG
     Route: 048
     Dates: start: 20050101, end: 20070617
  7. ZOLPIDEM [Concomitant]
     Dosage: DAILY DOSE:10MG
     Route: 048
     Dates: start: 20070525, end: 20070703
  8. L-THYROXIN [Concomitant]
     Route: 048
  9. TENORMIN [Concomitant]
     Dosage: DAILY DOSE:12.5MG
     Route: 048
  10. ALNA [Concomitant]
     Dosage: DAILY DOSE:.4MG
     Route: 048

REACTIONS (6)
  - CONSTIPATION [None]
  - DEPRESSION [None]
  - DRUG INEFFECTIVE [None]
  - DRUG INTERACTION [None]
  - MALABSORPTION [None]
  - PARKINSONISM [None]
